FAERS Safety Report 4724829-5 (Version None)
Quarter: 2005Q3

REPORT INFORMATION
  Report Type: 
  Country: None (occurrence: None)
  Receive Date: 20050726
  Receipt Date: 20050216
  Transmission Date: 20060218
  Serious: Yes (Death, Life-Threatening)
  Sender: FDA-Public Use
  Company Number: JP-ROCHE-395774

PATIENT
  Age: 51 Year
  Sex: Female

DRUGS (14)
  1. MYCOPHENOLATE MOFETIL [Suspect]
     Indication: LUNG TRANSPLANT REJECTION
     Route: 048
     Dates: start: 20040515, end: 20040526
  2. NEORAL [Suspect]
     Route: 048
     Dates: start: 20040510, end: 20040514
  3. IMURAN [Suspect]
     Route: 048
     Dates: start: 20040511, end: 20040514
  4. PROGRAF [Suspect]
     Indication: LUNG TRANSPLANT REJECTION
     Dosage: 0 - 4 MG DAILY.
     Route: 048
     Dates: start: 20040515, end: 20040525
  5. ORTHOCLONE OKT3 [Suspect]
     Indication: LUNG TRANSPLANT REJECTION
     Route: 065
     Dates: start: 20040516, end: 20040522
  6. STEROID NOS [Concomitant]
     Route: 048
     Dates: start: 20040519, end: 20040521
  7. SOLU-MEDROL [Concomitant]
     Route: 042
     Dates: start: 20040511, end: 20040526
  8. MEROPEN [Concomitant]
     Route: 042
     Dates: start: 20040510, end: 20040526
  9. FUNGUARD [Concomitant]
     Route: 042
     Dates: start: 20040514, end: 20040526
  10. BACTRAMIN [Concomitant]
     Route: 042
     Dates: start: 20040514, end: 20040520
  11. HABEKACIN [Concomitant]
     Route: 042
     Dates: start: 20040521, end: 20040526
  12. GASTER (JAPAN) [Concomitant]
     Route: 042
     Dates: start: 20040510, end: 20040526
  13. DIFLUCAN [Concomitant]
     Route: 042
     Dates: start: 20040511, end: 20040514
  14. HUMULIN R [Concomitant]
     Route: 041
     Dates: start: 20040510, end: 20040526

REACTIONS (4)
  - LUNG TRANSPLANT REJECTION [None]
  - PULMONARY ALVEOLAR HAEMORRHAGE [None]
  - PULMONARY OEDEMA [None]
  - RENAL FAILURE [None]
